FAERS Safety Report 5499598-4 (Version None)
Quarter: 2007Q4

REPORT INFORMATION
  Report Type: 
  Country: None (occurrence: None)
  Receive Date: 20071026
  Receipt Date: 20071016
  Transmission Date: 20080405
  Serious: Yes (Hospitalization)
  Sender: FDA-Public Use
  Company Number: GB-PFIZER INC-2007088493

PATIENT
  Age: 81 Year
  Sex: Female

DRUGS (7)
  1. SPIRONOLACTONE [Suspect]
     Indication: CARDIAC FAILURE CONGESTIVE
     Route: 048
     Dates: start: 20051125, end: 20051221
  2. FUROSEMIDE [Suspect]
     Indication: CARDIAC FAILURE CONGESTIVE
     Dosage: DAILY DOSE:20MG
     Route: 048
     Dates: start: 20050101, end: 20051221
  3. DURAGESIC-100 [Suspect]
     Indication: BACK PAIN
     Route: 062
     Dates: start: 20051216, end: 20051221
  4. CO-AMILOFRUSE [Suspect]
     Indication: CARDIAC FAILURE CONGESTIVE
     Dosage: TEXT:1 DF
     Route: 048
     Dates: start: 20050101, end: 20051221
  5. CO-CODAMOL [Concomitant]
     Dosage: TEXT:2 DF-FREQ:PRN
     Route: 048
  6. LACTULOSE [Concomitant]
     Route: 048
  7. SENNA [Concomitant]
     Route: 048

REACTIONS (3)
  - DEHYDRATION [None]
  - NAUSEA [None]
  - VOMITING [None]
